FAERS Safety Report 7407632-7 (Version None)
Quarter: 2011Q2

REPORT INFORMATION
  Report Type: 
  Country: None (occurrence: None)
  Receive Date: 20110401
  Receipt Date: 20110322
  Transmission Date: 20111010
  Serious: Yes (Other)
  Sender: FDA-Public Use
  Company Number: FRP10001104

PATIENT
  Age: 62 Year
  Sex: Female

DRUGS (6)
  1. L-TYROSINE (TYROSINE) [Concomitant]
  2. CALCIUM (CALCIUM) [Concomitant]
  3. DEDROGYL (CALCIFEDIOL) [Concomitant]
  4. ACTONEL [Suspect]
     Indication: OSTEOPOROSIS
     Dosage: 2 TABLET, 1/MONTH, ORAL
     Route: 048
     Dates: start: 20100516, end: 20100617
  5. CROMOGLYCATE DISODIUM (CROMOGLICATE SODIUM) [Concomitant]
  6. SPECIAFOLDINE (FOLIC ACID) [Concomitant]

REACTIONS (5)
  - TOOTH DISCOLOURATION [None]
  - TOOTH EROSION [None]
  - PAIN [None]
  - ORAL DISCOMFORT [None]
  - TOOTH DECALCIFICATION [None]
